FAERS Safety Report 7467848-0 (Version None)
Quarter: 2011Q2

REPORT INFORMATION
  Report Type: 
  Country: None (occurrence: None)
  Receive Date: 20110505
  Receipt Date: 20110505
  Transmission Date: 20111010
  Serious: No
  Sender: FDA-Public Use
  Company Number: None

PATIENT
  Age: 44 Year
  Sex: Female
  Weight: 58.9676 kg

DRUGS (2)
  1. SUMATRIPTAN SUCCINATE [Suspect]
     Dosage: 50 MG PRN PO 3X
     Route: 048
     Dates: start: 20110301, end: 20110401
  2. ALLEGRA [Concomitant]

REACTIONS (5)
  - NAUSEA [None]
  - PRODUCT TASTE ABNORMAL [None]
  - PRODUCT COATING ISSUE [None]
  - PRODUCT SUBSTITUTION ISSUE [None]
  - VOMITING [None]
